FAERS Safety Report 7668140-1 (Version None)
Quarter: 2011Q3

REPORT INFORMATION
  Report Type: 
  Country: None (occurrence: None)
  Receive Date: 20110808
  Receipt Date: 20110420
  Transmission Date: 20111222
  Serious: Yes (Other)
  Sender: FDA-Public Use
  Company Number: US-BAYER-2011-068747

PATIENT
  Age: 52 Year
  Sex: Male
  Weight: 70.748 kg

DRUGS (5)
  1. KEFLEX [Concomitant]
  2. MAGNEVIST [Suspect]
     Indication: PERIORBITAL ABSCESS
  3. MAGNEVIST [Suspect]
     Indication: NUCLEAR MAGNETIC RESONANCE IMAGING BRAIN
     Dosage: 14 ML, ONCE
     Route: 042
     Dates: start: 20110420, end: 20110420
  4. TOBRADEX [Concomitant]
     Route: 047
  5. BACITRACIN [Concomitant]
     Route: 047

REACTIONS (10)
  - COUGH [None]
  - ERYTHEMA [None]
  - OXYGEN SATURATION DECREASED [None]
  - BLOOD PRESSURE INCREASED [None]
  - HYPERHIDROSIS [None]
  - NAUSEA [None]
  - SWELLING FACE [None]
  - NASAL CONGESTION [None]
  - HYPOAESTHESIA [None]
  - HEART RATE INCREASED [None]
